FAERS Safety Report 4297282-6 (Version None)
Quarter: 2004Q1

REPORT INFORMATION
  Report Type: 
  Country: None (occurrence: None)
  Receive Date: 20040213
  Receipt Date: 20040204
  Transmission Date: 20041129
  Serious: Yes (Other)
  Sender: FDA-Public Use
  Company Number: 2004198144PT

PATIENT
  Age: 71 Year
  Sex: Male
  Weight: 75 kg

DRUGS (5)
  1. ZYVOX [Suspect]
     Indication: STAPHYLOCOCCAL SEPSIS
     Dosage: 1200 MG QD IV
     Route: 042
     Dates: start: 20031224, end: 20031228
  2. CILASTATIN SODIUM W/IMIPENEM (CILASTATIN SODIUM, IMIPENEM) [Concomitant]
  3. FLUCONAZOLE [Concomitant]
  4. AMIKACIN SULFATE [Concomitant]
  5. PIPERACILLIN SODIUM W/TAZOBACTAM SODIUM (TAZOBACTAM SODIUM) [Concomitant]

REACTIONS (4)
  - CUTANEOUS VASCULITIS [None]
  - PANCREATITIS [None]
  - RASH MACULO-PAPULAR [None]
  - RASH VESICULAR [None]
